FAERS Safety Report 13997935 (Version 1)
Quarter: 2017Q3

REPORT INFORMATION
  Report Type: Spontaneous
  Country: US (occurrence: US)
  Receive Date: 20170921
  Receipt Date: 20170921
  Transmission Date: 20171128
  Serious: Yes (Disabling)
  Sender: FDA-Public Use
  Company Number: None

PATIENT
  Age: 12 Year
  Sex: Male
  Weight: 63 kg

DRUGS (2)
  1. FLUTICASONE PROPIONATE. [Suspect]
     Active Substance: FLUTICASONE PROPIONATE
     Indication: NASAL CONGESTION
     Dosage: OTHER STRENGTH:MCG;?QUANTITY:2 SPRAY(S);?
     Route: 055
     Dates: start: 20170824, end: 20170921
  2. VITAMIN D [Concomitant]
     Active Substance: CHOLECALCIFEROL

REACTIONS (4)
  - Anxiety [None]
  - Fear [None]
  - Panic reaction [None]
  - Tearfulness [None]

NARRATIVE: CASE EVENT DATE: 20170918
